FAERS Safety Report 12483072 (Version 1)
Quarter: 2016Q2

REPORT INFORMATION
  Report Type: Report from Study
  Country: BE (occurrence: BE)
  Receive Date: 20160620
  Receipt Date: 20160620
  Transmission Date: 20160815
  Serious: Yes (Other)
  Sender: FDA-Public Use
  Company Number: PHHY2016BE084344

PATIENT
  Age: 47 Year
  Sex: Female

DRUGS (1)
  1. GILENYA [Suspect]
     Active Substance: FINGOLIMOD HYDROCHLORIDE
     Indication: MULTIPLE SCLEROSIS
     Dosage: 0.5 MG, QD
     Route: 048
     Dates: start: 20130920

REACTIONS (3)
  - Benign neoplasm of skin [Recovering/Resolving]
  - Nasopharyngitis [Not Recovered/Not Resolved]
  - Skin cancer [Recovering/Resolving]

NARRATIVE: CASE EVENT DATE: 20160517
